FAERS Safety Report 9467955 (Version 1)
Quarter: 2013Q3

REPORT INFORMATION
  Report Type: Spontaneous
  Country: US (occurrence: None)
  Receive Date: 20130819
  Receipt Date: 20130819
  Transmission Date: 20140515
  Serious: No
  Sender: FDA-Public Use
  Company Number: None

PATIENT
  Sex: 0

DRUGS (2)
  1. BENICAR/HYDROCHLOROTHIAZIDE [Suspect]
     Dosage: 1 TABLET
     Route: 048
  2. BENAZEPRIL AND HYDROCHLOROTHIAZIDE [Suspect]
     Dosage: 2 TABLETS

REACTIONS (1)
  - Drug dispensing error [None]
